FAERS Safety Report 7526739-7 (Version None)
Quarter: 2011Q2

REPORT INFORMATION
  Report Type: 
  Country: None (occurrence: None)
  Receive Date: 20110606
  Receipt Date: 20110526
  Transmission Date: 20111010
  Serious: Yes (Disabling)
  Sender: FDA-Public Use
  Company Number: GB-ASTRAZENECA-2011SE32372

PATIENT
  Age: 76 Year
  Sex: Male

DRUGS (11)
  1. ZOLADEX [Concomitant]
     Dates: start: 20101231
  2. ASPIRIN [Concomitant]
     Dates: start: 20110101
  3. E-45 [Concomitant]
     Dates: start: 20110128
  4. BICALUTAMIDE [Suspect]
     Route: 048
     Dates: start: 20110104, end: 20110301
  5. HYDROCORTISONE [Concomitant]
     Dates: start: 20110101
  6. FLOXACILLIN SODIUM [Concomitant]
     Dates: start: 20110214
  7. KETOCONAZOLE [Concomitant]
     Dates: start: 20110128
  8. HYPROMELLOSE [Concomitant]
     Dates: start: 20110101
  9. ACETAMINOPHEN [Concomitant]
     Dates: start: 20110101
  10. BISOPROLOL FUMARATE [Concomitant]
     Dates: start: 20110101
  11. BETAMETHASONE VALERATE [Concomitant]
     Dates: start: 20110214

REACTIONS (4)
  - JOINT SWELLING [None]
  - EYE PRURITUS [None]
  - PENILE OEDEMA [None]
  - EYE PAIN [None]
